FAERS Safety Report 23021384 (Version 1)
Quarter: 2023Q4

REPORT INFORMATION
  Report Type: Spontaneous
  Country: US (occurrence: None)
  Receive Date: 20231003
  Receipt Date: 20231003
  Transmission Date: 20240110
  Serious: Yes (Other)
  Sender: FDA-Public Use
  Company Number: None

PATIENT
  Age: 65 Year
  Sex: Male
  Weight: 94.5 kg

DRUGS (13)
  1. ISONIAZID [Suspect]
     Active Substance: ISONIAZID
  2. RIFAPENTINE [Suspect]
     Active Substance: RIFAPENTINE
  3. VITAMINS [Concomitant]
     Active Substance: VITAMINS
  4. PYRIDOXINE HYDROCHLORIDE [Concomitant]
     Active Substance: PYRIDOXINE HYDROCHLORIDE
  5. VITAMIN D3 [Concomitant]
     Active Substance: CHOLECALCIFEROL
  6. E [Concomitant]
  7. ZINC [Concomitant]
     Active Substance: ZINC
  8. MAGNESIUM [Concomitant]
     Active Substance: MAGNESIUM
  9. FISH OIL [Concomitant]
     Active Substance: FISH OIL
  10. PROBIOTICS NOS [Concomitant]
     Active Substance: PROBIOTICS NOS
  11. CURCUMIN [Concomitant]
     Active Substance: CURCUMIN
  12. QUERCETIN [Concomitant]
     Active Substance: QUERCETIN
  13. black cumin seed oil [Concomitant]

REACTIONS (4)
  - Myalgia [None]
  - Fatigue [None]
  - Discomfort [None]
  - Fatigue [None]

NARRATIVE: CASE EVENT DATE: 20231001
